FAERS Safety Report 5229665-1 (Version None)
Quarter: 2007Q1

REPORT INFORMATION
  Report Type: 
  Country: None (occurrence: None)
  Receive Date: 20070201
  Receipt Date: 20070126
  Transmission Date: 20070707
  Serious: No
  Sender: FDA-Public Use
  Company Number: 30810

PATIENT
  Age: 17 Year
  Sex: Male
  Weight: 109 kg

DRUGS (3)
  1. ALDARA [Suspect]
     Indication: MIGRAINE
     Dosage: (0.3 SACHET, 2 TOTAL, TOPICAL
     Route: 061
     Dates: start: 20070103, end: 20070104
  2. ALDARA [Suspect]
     Indication: SKIN PAPILLOMA
     Dosage: (0.3 SACHET, 2 TOTAL, TOPICAL
     Route: 061
     Dates: start: 20070103, end: 20070104
  3. NAPROXEN [Concomitant]

REACTIONS (8)
  - FATIGUE [None]
  - HEADACHE [None]
  - HYPOAESTHESIA [None]
  - INFLUENZA [None]
  - NAUSEA [None]
  - OEDEMA PERIPHERAL [None]
  - PULMONARY CONGESTION [None]
  - UPPER RESPIRATORY TRACT INFECTION [None]
